FAERS Safety Report 10172846 (Version 1)
Quarter: 2014Q2

REPORT INFORMATION
  Report Type: Spontaneous
  Country: US (occurrence: US)
  Receive Date: 20140515
  Receipt Date: 20140515
  Transmission Date: 20141212
  Serious: Yes (Hospitalization, Other)
  Sender: FDA-Public Use
  Company Number: US-AMGEN INC.-USASP2014035201

PATIENT
  Age: 51 Year
  Sex: Female

DRUGS (1)
  1. ENBREL [Suspect]
     Indication: RHEUMATOID ARTHRITIS
     Dosage: 50 MG, QWK
     Route: 065
     Dates: start: 20120820, end: 20140429

REACTIONS (3)
  - Cerebrovascular accident [Recovered/Resolved]
  - Intracranial aneurysm [Recovered/Resolved]
  - Intervertebral disc degeneration [Not Recovered/Not Resolved]
